FAERS Safety Report 7586516-8 (Version None)
Quarter: 2011Q3

REPORT INFORMATION
  Report Type: 
  Country: None (occurrence: None)
  Receive Date: 20110701
  Receipt Date: 20110620
  Transmission Date: 20111222
  Serious: Yes (Life-Threatening, Hospitalization)
  Sender: FDA-Public Use
  Company Number: FR-ROCHE-784766

PATIENT
  Sex: Female
  Weight: 73 kg

DRUGS (5)
  1. CYCLOPHOSPHAMIDE [Suspect]
     Indication: BREAST CANCER
     Dosage: DATE OF LAST DOSE: 06 JAN 2009
     Route: 042
     Dates: start: 20081125
  2. EPIRUBICIN [Suspect]
     Indication: BREAST CANCER
     Dosage: DATE OF LAST DOSE: 09 JAN 2009
     Route: 042
     Dates: start: 20081125
  3. TAXOTERE [Suspect]
     Indication: BREAST CANCER
     Dosage: DATE OF LAST DOSE: 10 MAR 2009
     Route: 042
     Dates: start: 20090127
  4. BEVACIZUMAB [Suspect]
     Indication: BREAST CANCER
     Dosage: DATE OF LAST DOSE: 17 NOV 2009
     Route: 042
     Dates: start: 20081125
  5. FLUOROURACIL [Suspect]
     Indication: BREAST CANCER
     Dosage: DATE OF LAST DOSE: 06 JAN 2009
     Route: 042
     Dates: start: 20081125

REACTIONS (1)
  - CARDIAC ARREST [None]
